FAERS Safety Report 9739325 (Version 1)
Quarter: 2013Q4

REPORT INFORMATION
  Report Type: Spontaneous
  Country: GB (occurrence: GB)
  Receive Date: 20131209
  Receipt Date: 20131209
  Transmission Date: 20140711
  Serious: Yes (Hospitalization)
  Sender: FDA-Public Use
  Company Number: GB-ROXANE LABORATORIES, INC.-2013-RO-01908RO

PATIENT
  Age: 15 Year
  Sex: Female

DRUGS (6)
  1. PREDNISONE [Suspect]
     Indication: EYE INFECTION TOXOPLASMAL
     Dosage: 40 MG
  2. SULFADIAZINE [Suspect]
     Indication: EYE INFECTION TOXOPLASMAL
     Dosage: 4 G
     Route: 048
  3. PYRIMETHAMINE [Suspect]
     Indication: EYE INFECTION TOXOPLASMAL
     Dosage: 50 MG
  4. FOLINIC ACID [Suspect]
     Indication: EYE INFECTION TOXOPLASMAL
  5. DEXAMETHASONE [Suspect]
     Indication: EYE INFECTION TOXOPLASMAL
     Route: 061
  6. KETOROLAC [Suspect]
     Indication: EYE INFECTION TOXOPLASMAL
     Route: 031

REACTIONS (1)
  - Drug reaction with eosinophilia and systemic symptoms [Recovered/Resolved]
